FAERS Safety Report 8451294-7 (Version None)
Quarter: 2012Q2

REPORT INFORMATION
  Report Type: 
  Country: None (occurrence: None)
  Receive Date: 20120620
  Receipt Date: 20120227
  Transmission Date: 20120825
  Serious: No
  Sender: FDA-Public Use
  Company Number: US-VERTEX PHARMACEUTICALS INC.-AE-2012-002374

PATIENT
  Sex: Female
  Weight: 55.842 kg

DRUGS (8)
  1. OXYCODONE HCL [Concomitant]
     Indication: BACK PAIN
     Route: 048
  2. LOVAZA [Concomitant]
  3. RIBAVIRIN [Concomitant]
     Indication: HEPATITIS C
     Route: 048
     Dates: start: 20111118
  4. VITAMIN D [Concomitant]
  5. VITAMIN B COMPLEX CAP [Concomitant]
  6. PEGASYS [Concomitant]
     Indication: HEPATITIS C
     Route: 058
     Dates: start: 20111118
  7. INCIVEK [Suspect]
     Indication: HEPATITIS C
     Route: 048
     Dates: start: 20111118, end: 20120210
  8. VALIUM [Concomitant]
     Indication: MUSCLE SPASMS
     Route: 048

REACTIONS (2)
  - OEDEMA PERIPHERAL [None]
  - ANAEMIA [None]
